FAERS Safety Report 12904843 (Version 5)
Quarter: 2017Q1

REPORT INFORMATION
  Report Type: Spontaneous
  Country: US (occurrence: US)
  Receive Date: 20161102
  Receipt Date: 20170207
  Transmission Date: 20170428
  Serious: Yes (Hospitalization)
  Sender: FDA-Public Use
  Company Number: US-ACTELION-A-NJ2016-144865

PATIENT
  Age: 39 Year
  Sex: Female
  Weight: 90.7 kg

DRUGS (5)
  1. DIGOXIN. [Concomitant]
     Active Substance: DIGOXIN
  2. ADCIRCA [Concomitant]
     Active Substance: TADALAFIL
  3. COUMADIN [Concomitant]
     Active Substance: WARFARIN SODIUM
  4. OMEPRAZOLE. [Concomitant]
     Active Substance: OMEPRAZOLE
  5. TRACLEER [Suspect]
     Active Substance: BOSENTAN
     Indication: PULMONARY ARTERIAL HYPERTENSION
     Dosage: 125 MG, BID
     Route: 048
     Dates: start: 20101202

REACTIONS (10)
  - Ovarian cystectomy [Unknown]
  - Abdominal pain lower [Recovered/Resolved]
  - Haemoptysis [Unknown]
  - Flatulence [Unknown]
  - Salpingectomy [Recovered/Resolved]
  - Fungal infection [Unknown]
  - Constipation [Unknown]
  - Oropharyngeal pain [Unknown]
  - Uterine haemorrhage [Recovered/Resolved]
  - Night sweats [Unknown]

NARRATIVE: CASE EVENT DATE: 20161029
